FAERS Safety Report 7525109-5 (Version None)
Quarter: 2011Q2

REPORT INFORMATION
  Report Type: 
  Country: None (occurrence: None)
  Receive Date: 20110606
  Receipt Date: 20091114
  Transmission Date: 20111010
  Serious: Yes (Death, Hospitalization, Other)
  Sender: FDA-Public Use
  Company Number: US-BAYER-200939582NA

PATIENT
  Age: 68 Year
  Sex: Female
  Weight: 75 kg

DRUGS (27)
  1. COREG [Concomitant]
     Dosage: 3.125 MG, QD
     Route: 048
     Dates: start: 20040501, end: 20040601
  2. PRANDIN [Concomitant]
     Dosage: 2 MG, WITH MEALS
     Route: 048
     Dates: start: 20040501, end: 20040601
  3. HYDRALAZINE HCL [Concomitant]
     Dosage: 10 MG, QID
     Route: 048
     Dates: start: 20040501, end: 20040701
  4. MORPHINE [Concomitant]
     Dosage: MULTIPLE BOLUSES
     Route: 042
     Dates: start: 20040511
  5. EPINEPHRINE [Concomitant]
     Dosage: 0.05 MCG/KG/MINUTE
     Route: 042
     Dates: start: 20040615, end: 20040622
  6. TRASYLOL [Suspect]
     Indication: CORONARY ARTERY BYPASS
  7. DOPAMINE HCL [Concomitant]
     Dosage: 2 MCG/KG/MINUTE
     Route: 042
     Dates: start: 20040615, end: 20040615
  8. NITROGLYCERIN [Concomitant]
     Dosage: UNK
     Route: 042
     Dates: start: 20040506
  9. HEPARIN [Concomitant]
     Dosage: 23000 U, UNK
     Route: 042
     Dates: start: 20040615, end: 20040615
  10. TOPROL-XL [Concomitant]
     Dosage: 100 MG, QD
     Route: 048
     Dates: start: 20040101, end: 20040501
  11. LASIX [Concomitant]
     Dosage: 40 MG, UNK
     Route: 042
     Dates: start: 20040607, end: 20040622
  12. PLAVIX [Concomitant]
     Dosage: 75 MG, UNK
     Route: 048
     Dates: end: 20040609
  13. CEFTIN [Concomitant]
     Dosage: 250 MG, QD
     Route: 048
     Dates: start: 20040524, end: 20040601
  14. BUMEX [Concomitant]
     Dosage: 2-4 MG DAILY
     Route: 048
     Dates: start: 20040401
  15. TRASYLOL [Suspect]
     Indication: STERNOTOMY
     Dosage: 100 ML, LOADING DOSE
     Route: 042
     Dates: start: 20040615, end: 20040615
  16. TRASYLOL [Suspect]
     Indication: MITRAL VALVE REPLACEMENT
     Dosage: INFUSION AT 50 ML/HOUR
     Route: 042
     Dates: start: 20040615, end: 20040615
  17. ACETYLSALICYLIC ACID SRT [Concomitant]
     Dosage: 325 MG, QD
     Route: 048
     Dates: start: 20040501, end: 20040701
  18. ZOLOFT [Concomitant]
     Dosage: 50 MG, QD
     Route: 048
     Dates: start: 20040501, end: 20040601
  19. VANCOMYCIN [Concomitant]
     Dosage: 1 G, UNK
     Route: 042
     Dates: start: 20040615, end: 20040720
  20. ALBUMIN (HUMAN) [Concomitant]
     Dosage: 25 G, UNK
     Dates: start: 20040615, end: 20040615
  21. LISINOPRIL [Concomitant]
     Dosage: 20 MG, UNK
     Route: 048
     Dates: end: 20040501
  22. TRASYLOL [Suspect]
     Indication: INTRA-AORTIC BALLOON PLACEMENT
     Dosage: UNK
     Dates: start: 20040107
  23. MANNITOL [Concomitant]
     Dosage: 25 G, UNK
     Dates: start: 20040615, end: 20040615
  24. ZOCOR [Concomitant]
     Dosage: 40 MG, UNK
     Route: 048
     Dates: end: 20040601
  25. NPH INSULIN [Concomitant]
     Dosage: 10 U, EVERY 12 HOURS
     Route: 058
     Dates: start: 20040607, end: 20040615
  26. LASIX [Concomitant]
     Dosage: 30 MG, UNK
     Route: 042
     Dates: start: 20040615
  27. ETOMIDATE [Concomitant]
     Dosage: 20 MG, UNK
     Route: 042
     Dates: start: 20040615, end: 20040615

REACTIONS (8)
  - ANHEDONIA [None]
  - UNEVALUABLE EVENT [None]
  - FEAR [None]
  - INJURY [None]
  - PAIN [None]
  - RENAL FAILURE [None]
  - ANXIETY [None]
  - DEPRESSION [None]
